FAERS Safety Report 22904712 (Version 2)
Quarter: 2023Q4

REPORT INFORMATION
  Report Type: Spontaneous
  Country: US (occurrence: US)
  Receive Date: 20230905
  Receipt Date: 20231017
  Transmission Date: 20240109
  Serious: No
  Sender: FDA-Public Use
  Company Number: US-SANOFI-01745664

PATIENT
  Age: 57 Year
  Sex: Female
  Weight: 58.957 kg

DRUGS (12)
  1. DUPIXENT [Suspect]
     Active Substance: DUPILUMAB
     Indication: Dermatitis atopic
     Dosage: 600 MG, 1X
     Route: 058
     Dates: start: 20230731, end: 20230731
  2. TACROLIMUS [Concomitant]
     Active Substance: TACROLIMUS
     Indication: Urticaria
     Dosage: 1 DF (1 APPLICATION ON SKIN), BID
     Route: 061
     Dates: start: 20230723
  3. TACROLIMUS [Concomitant]
     Active Substance: TACROLIMUS
     Indication: Dermatitis atopic
  4. TACROLIMUS [Concomitant]
     Active Substance: TACROLIMUS
     Indication: Dermatitis contact
  5. HYDROCORTISONE VALERATE [Concomitant]
     Active Substance: HYDROCORTISONE VALERATE
     Indication: Urticaria
     Dosage: 1 DF (1 APPLICATION), BID
     Route: 061
     Dates: start: 20230723
  6. HYDROCORTISONE VALERATE [Concomitant]
     Active Substance: HYDROCORTISONE VALERATE
     Indication: Dermatitis atopic
  7. HYDROCORTISONE VALERATE [Concomitant]
     Active Substance: HYDROCORTISONE VALERATE
     Indication: Dermatitis contact
  8. METHYLPREDNISOLONE [Concomitant]
     Active Substance: METHYLPREDNISOLONE
     Indication: Dermatitis atopic
     Dosage: 1 DF (1 TABLET AS DIRECTED, TAKE PER PACKAGE INSTRUCTION)
     Route: 048
     Dates: start: 20230721
  9. DESONIDE [Concomitant]
     Active Substance: DESONIDE
     Dosage: 2 DF
  10. VITAMIN D NOS [Concomitant]
     Active Substance: VITAMIN D NOS
     Dosage: 1 DF
  11. ZYRTEC [Concomitant]
     Active Substance: CETIRIZINE HYDROCHLORIDE
     Dosage: 1 DF, BID (AM AND PM; IN THE MORNING AND AT NIGHT)
  12. BENADRYL [Concomitant]
     Active Substance: DIPHENHYDRAMINE HYDROCHLORIDE
     Dosage: AS TOLERATED

REACTIONS (9)
  - Conjunctivitis [Recovered/Resolved]
  - Ocular hyperaemia [Recovered/Resolved]
  - Eye pruritus [Recovered/Resolved]
  - Eye inflammation [Recovered/Resolved]
  - Eye swelling [Recovered/Resolved]
  - Blepharitis [Recovered/Resolved]
  - Eyelids pruritus [Recovered/Resolved]
  - Erythema of eyelid [Recovered/Resolved]
  - Swelling of eyelid [Recovered/Resolved]

NARRATIVE: CASE EVENT DATE: 20230804
